FAERS Safety Report 7000320-0 (Version None)
Quarter: 2010Q3

REPORT INFORMATION
  Report Type: 
  Country: None (occurrence: None)
  Receive Date: 20100920
  Receipt Date: 20100714
  Transmission Date: 20110219
  Serious: No
  Sender: FDA-Public Use
  Company Number: US-ASTRAZENECA-2010SE12526

PATIENT
  Age: 694 Month
  Sex: Male
  Weight: 84.8 kg

DRUGS (9)
  1. SEROQUEL [Suspect]
     Indication: BIPOLAR DISORDER
     Route: 048
  2. SEROQUEL [Suspect]
     Indication: SLEEP DISORDER
     Route: 048
  3. SEROQUEL [Suspect]
     Route: 048
     Dates: start: 20100101
  4. SEROQUEL [Suspect]
     Route: 048
     Dates: start: 20100101
  5. LITHIUM [Concomitant]
     Route: 048
  6. NEURONTIN [Concomitant]
     Indication: MUSCLE SPASMS
     Dosage: ONE TAB PRN
     Route: 048
  7. AMPHETAMINES [Concomitant]
     Indication: CHRONIC FATIGUE SYNDROME
     Route: 048
  8. CLONAZAPAM [Concomitant]
     Indication: PYREXIA
     Route: 048
  9. ARICEPT [Concomitant]
     Indication: DEMENTIA ALZHEIMER'S TYPE
     Dosage: DAILY
     Route: 048

REACTIONS (3)
  - DRUG DOSE OMISSION [None]
  - MIDDLE INSOMNIA [None]
  - SOMNOLENCE [None]
